FAERS Safety Report 23763100 (Version 2)
Quarter: 2024Q2

REPORT INFORMATION
  Report Type: Spontaneous
  Country: CN (occurrence: CN)
  Receive Date: 20240419
  Receipt Date: 20240424
  Transmission Date: 20240716
  Serious: No
  Sender: FDA-Public Use
  Company Number: CN-002147023-NVSC2024CN080280

PATIENT
  Age: 39 Year
  Sex: Male
  Weight: 80 kg

DRUGS (1)
  1. DEXAMETHASONE\TOBRAMYCIN [Suspect]
     Active Substance: DEXAMETHASONE\TOBRAMYCIN
     Indication: Ophthalmic herpes simplex
     Dosage: 0.1 ML, BID
     Route: 047
     Dates: start: 20240410, end: 20240411

REACTIONS (9)
  - Eye swelling [Recovered/Resolved]
  - Vision blurred [Unknown]
  - Ocular discomfort [Unknown]
  - Corneal opacity [Unknown]
  - Fluorescence angiogram abnormal [Unknown]
  - Keratic precipitates [Unknown]
  - Anterior chamber flare [Unknown]
  - Intraocular pressure increased [Recovered/Resolved]
  - Ocular hyperaemia [Unknown]

NARRATIVE: CASE EVENT DATE: 20240411
